FAERS Safety Report 8597050-0 (Version None)
Quarter: 2012Q3

REPORT INFORMATION
  Report Type: 
  Country: None (occurrence: None)
  Receive Date: 20120816
  Receipt Date: 20120807
  Transmission Date: 20120928
  Serious: Yes (Hospitalization, Other)
  Sender: FDA-Public Use
  Company Number: DE-AMGEN-DEUSP2012042065

PATIENT
  Age: 62 Year
  Sex: Female
  Weight: 64 kg

DRUGS (8)
  1. METHOTREXATE [Concomitant]
     Indication: RHEUMATOID ARTHRITIS
     Dosage: 15 MG, ONCE WEEKLY ON SATURDAYS
     Route: 058
     Dates: start: 19970101
  2. METHOTREXATE [Concomitant]
     Dosage: UNK
  3. ENBREL [Suspect]
     Indication: RHEUMATOID ARTHRITIS
     Dosage: 50 MG, WEEKLY
     Dates: start: 20080601, end: 20120601
  4. PREDNISOLONE [Concomitant]
     Indication: RHEUMATOID ARTHRITIS
     Dosage: 5 MG, 1X/DAY IN THE MORNING
     Route: 048
     Dates: start: 19970101
  5. LEVOTHYROXINE SODIUM [Concomitant]
     Indication: HYPOTHYROIDISM
     Dosage: 25 MG, 1X/DAY IN THE MORNING
     Route: 048
     Dates: start: 20090101
  6. ENBREL [Suspect]
     Dosage: 50 MG, EVERY 5 DAYS
     Route: 058
     Dates: start: 20080601, end: 20120601
  7. FOLSAN [Concomitant]
     Indication: RHEUMATOID ARTHRITIS
     Dosage: 5 MG, ONCE WEEKLY ON SATURDAYS
     Route: 048
  8. PREDNISOLONE [Suspect]
     Dosage: 10 MG, UNK
     Dates: start: 20120417

REACTIONS (2)
  - INFECTIVE TENOSYNOVITIS [None]
  - ARTHRITIS [None]
